FAERS Safety Report 7275355-3 (Version None)
Quarter: 2011Q1

REPORT INFORMATION
  Report Type: 
  Country: None (occurrence: None)
  Receive Date: 20110204
  Receipt Date: 20110124
  Transmission Date: 20110831
  Serious: Yes (Hospitalization)
  Sender: FDA-Public Use
  Company Number: US-ELI_LILLY_AND_COMPANY-US201101006321

PATIENT
  Age: 48 Year
  Sex: Female
  Weight: 54.422 kg

DRUGS (6)
  1. VITAMIN D [Concomitant]
     Dosage: UNK, DAILY (1/D)
  2. NEURONTIN /SCH/ [Concomitant]
     Indication: AFFECTIVE DISORDER
     Dosage: 300 MG, 2/D
     Route: 048
     Dates: start: 20101206
  3. COLACE [Concomitant]
     Dosage: UNK, 2/D
  4. LITHIUM [Concomitant]
     Dates: start: 20100901
  5. ZYPREXA [Suspect]
     Dosage: 30 MG, DAILY (1/D)
     Route: 048
     Dates: start: 20101001
  6. NEURONTIN /SCH/ [Concomitant]
     Dosage: 300 MG, 4/D
     Route: 048

REACTIONS (5)
  - PARAESTHESIA [None]
  - OEDEMA PERIPHERAL [None]
  - OVERDOSE [None]
  - THYROID DISORDER [None]
  - JOINT SWELLING [None]
